FAERS Safety Report 8065043-8 (Version None)
Quarter: 2012Q1

REPORT INFORMATION
  Report Type: 
  Country: None (occurrence: None)
  Receive Date: 20120124
  Receipt Date: 20120120
  Transmission Date: 20120608
  Serious: No
  Sender: FDA-Public Use
  Company Number: US-PFIZER INC-2012017482

PATIENT
  Sex: Female
  Weight: 88.435 kg

DRUGS (13)
  1. GEODON [Suspect]
     Indication: MANIA
     Dosage: 20 MG IN THE MORNING AND 40MG AT NIGHT
     Route: 048
     Dates: start: 20110101
  2. VITAMIN D [Concomitant]
     Indication: VITAMIN SUPPLEMENTATION
     Dosage: 1000 IU, DAILY
  3. FLEXERIL [Concomitant]
     Indication: MUSCLE SPASMS
     Dosage: 10 MG, AS NEEDED
     Route: 048
  4. ANASTROZOLE [Concomitant]
     Indication: NEOPLASM MALIGNANT
     Dosage: 1 MG, DAILY
     Route: 048
  5. HYDROCHLOROTHIAZIDE [Concomitant]
     Indication: DIURETIC THERAPY
     Dosage: 25 MG, DAILY
  6. PREDNISOLONE ACETATE [Concomitant]
     Indication: CORNEAL TRANSPLANT
     Dosage: UNK
     Route: 047
  7. OXYCODONE [Concomitant]
     Indication: PAIN
     Dosage: 2 MG, EVERY SIX HOURS
  8. CALCIUM [Concomitant]
     Indication: MINERAL SUPPLEMENTATION
     Dosage: 1200 MG, DAILY
     Route: 048
  9. KLONOPIN [Concomitant]
     Dosage: UNK
     Route: 048
  10. FLEXERIL [Concomitant]
     Indication: BACK PAIN
  11. ZOCOR [Concomitant]
     Indication: BLOOD CHOLESTEROL ABNORMAL
     Dosage: 40 MG, DAILY
     Route: 048
  12. ZOLOFT [Concomitant]
     Indication: DEPRESSION
     Dosage: 150 MG, DAILY
     Route: 048
  13. ACYCLOVIR [Concomitant]
     Indication: HERPES VIRUS INFECTION
     Dosage: 400 MG, 3X/DAY
     Route: 048

REACTIONS (1)
  - URINE ODOUR ABNORMAL [None]
